FAERS Safety Report 14692483 (Version 2)
Quarter: 2018Q2

REPORT INFORMATION
  Report Type: Spontaneous
  Country: US (occurrence: US)
  Receive Date: 20180329
  Receipt Date: 20180402
  Transmission Date: 20180711
  Serious: No
  Sender: FDA-Public Use
  Company Number: US-PFIZER INC-2018125494

PATIENT
  Age: 86 Year
  Sex: Female
  Weight: 81.63 kg

DRUGS (1)
  1. DICLOFENAC SODIUM/MISOPROSTOL [Suspect]
     Active Substance: DICLOFENAC SODIUM\MISOPROSTOL
     Indication: OSTEOARTHRITIS
     Dosage: 50MG/200MG TABLET ONE BY MOUTH FOR THE FIRST WEEK OR TWO AND THEN SHE COULD TAKE TWO A DAY
     Route: 048
     Dates: start: 20180220, end: 20180322

REACTIONS (10)
  - Dysuria [Recovered/Resolved]
  - Lymphadenopathy [Recovering/Resolving]
  - Ageusia [Not Recovered/Not Resolved]
  - Condition aggravated [Unknown]
  - Oropharyngeal pain [Recovering/Resolving]
  - Osteoarthritis [Recovering/Resolving]
  - Ear pain [Recovering/Resolving]
  - Mouth swelling [Recovering/Resolving]
  - Swollen tongue [Recovering/Resolving]
  - Dry mouth [Recovering/Resolving]

NARRATIVE: CASE EVENT DATE: 201802
